FAERS Safety Report 8142643-8 (Version None)
Quarter: 2012Q1

REPORT INFORMATION
  Report Type: 
  Country: None (occurrence: None)
  Receive Date: 20120216
  Receipt Date: 20120208
  Transmission Date: 20120608
  Serious: Yes (Other)
  Sender: FDA-Public Use
  Company Number: GB-ABBOTT-12P-167-0902904-00

PATIENT
  Sex: Female

DRUGS (2)
  1. OTHER BIOLOGIC DRUG [Concomitant]
     Indication: RHEUMATOID ARTHRITIS
  2. HUMIRA [Suspect]
     Indication: RHEUMATOID ARTHRITIS
     Route: 058
     Dates: start: 20060830, end: 20100119

REACTIONS (9)
  - LUNG CARCINOMA CELL TYPE UNSPECIFIED RECURRENT [None]
  - VOCAL CORD PARALYSIS [None]
  - COMPUTERISED TOMOGRAM THORAX ABNORMAL [None]
  - LUNG NEOPLASM [None]
  - PLEURAL DISORDER [None]
  - VOCAL CORD DISORDER [None]
  - LUNG CONSOLIDATION [None]
  - CARDIOMEGALY [None]
  - LYMPHADENOPATHY MEDIASTINAL [None]
